FAERS Safety Report 5469988-4 (Version None)
Quarter: 2007Q3

REPORT INFORMATION
  Report Type: 
  Country: None (occurrence: None)
  Receive Date: 20070927
  Receipt Date: 20070917
  Transmission Date: 20080115
  Serious: Yes (Other)
  Sender: FDA-Public Use
  Company Number: GB-PFIZER INC-2007077744

PATIENT
  Age: 42 Year
  Sex: Male
  Weight: 88 kg

DRUGS (2)
  1. CHAMPIX [Suspect]
     Route: 048
  2. LOSARTAN POSTASSIUM [Concomitant]
     Indication: HYPERTENSION

REACTIONS (2)
  - NIGHTMARE [None]
  - PRIAPISM [None]
